FAERS Safety Report 5802283-X (Version None)
Quarter: 2008Q3

REPORT INFORMATION
  Report Type: 
  Country: None (occurrence: None)
  Receive Date: 20080707
  Receipt Date: 20080624
  Transmission Date: 20090109
  Serious: Yes (Hospitalization)
  Sender: FDA-Public Use
  Company Number: US-SANOFI-SYNTHELABO-A03200801345

PATIENT
  Sex: Female
  Weight: 78.5 kg

DRUGS (5)
  1. AMBIEN [Suspect]
     Indication: DRUG USE FOR UNKNOWN INDICATION
     Route: 048
     Dates: start: 20070909, end: 20080226
  2. LIPITOR [Concomitant]
     Indication: CORONARY ARTERY DISEASE
     Route: 065
  3. ACIPHEX [Concomitant]
     Indication: GASTROOESOPHAGEAL REFLUX DISEASE
     Route: 065
  4. EFFEXOR XR [Concomitant]
     Indication: ANXIETY
     Route: 065
  5. EFFEXOR XR [Concomitant]
     Indication: DEPRESSION
     Route: 065

REACTIONS (7)
  - COLLAPSE OF LUNG [None]
  - FALL [None]
  - PAIN [None]
  - PNEUMOTHORAX [None]
  - RIB FRACTURE [None]
  - SOMNAMBULISM [None]
  - SPINAL FRACTURE [None]
